FAERS Safety Report 20777267 (Version 1)
Quarter: 2022Q2

REPORT INFORMATION
  Report Type: Report from Study
  Country: FR (occurrence: FR)
  Receive Date: 20220503
  Receipt Date: 20220503
  Transmission Date: 20220720
  Serious: Yes (Hospitalization)
  Sender: FDA-Public Use
  Company Number: FR-ABBVIE-22K-056-4376745-00

PATIENT
  Age: 67 Year
  Sex: Male

DRUGS (2)
  1. RISANKIZUMAB [Suspect]
     Active Substance: RISANKIZUMAB
     Indication: Psoriasis
     Route: 058
     Dates: start: 20210517, end: 20220110
  2. RISANKIZUMAB [Suspect]
     Active Substance: RISANKIZUMAB
     Route: 058
     Dates: start: 20220410

REACTIONS (1)
  - Arterial insufficiency [Recovered/Resolved]

NARRATIVE: CASE EVENT DATE: 20220125
